FAERS Safety Report 7360016-2 (Version None)
Quarter: 2011Q1

REPORT INFORMATION
  Report Type: 
  Country: None (occurrence: None)
  Receive Date: 20110317
  Receipt Date: 20110316
  Transmission Date: 20110831
  Serious: Yes (Other)
  Sender: FDA-Public Use
  Company Number: US-ELI_LILLY_AND_COMPANY-US201103005037

PATIENT
  Age: 27 Year
  Sex: Female

DRUGS (2)
  1. PROZAC [Suspect]
  2. ALCOHOL [Concomitant]

REACTIONS (1)
  - CHILD ABUSE [None]
